FAERS Safety Report 4355851-9 (Version None)
Quarter: 2004Q2

REPORT INFORMATION
  Report Type: 
  Country: None (occurrence: None)
  Receive Date: 20040505
  Receipt Date: 20040426
  Transmission Date: 20050107
  Serious: Yes (Hospitalization)
  Sender: FDA-Public Use
  Company Number: DEWYE725927APR04

PATIENT
  Age: 39 Year
  Sex: Male

DRUGS (15)
  1. RAPAMUNE [Suspect]
     Indication: PROPHYLAXIS AGAINST TRANSPLANT REJECTION
     Dosage: 5 MG
     Dates: start: 20030710, end: 20031007
  2. URBASON (METHYLPREDNISOLONE) [Concomitant]
  3. NORVASC [Concomitant]
  4. METOPROLOL SUCCINATE [Concomitant]
  5. DIBLOCIN (DOXAZOSIN MESILATE) [Concomitant]
  6. OMEPRAZOLE [Concomitant]
  7. MAGNESIUM VERLA TABLETTEN (MAGNESIUM HYDROGEN ASPARTATE) [Concomitant]
  8. PROGRAF [Concomitant]
  9. HYDROCHLOROTHIAZIDE [Concomitant]
  10. DIOVAN [Concomitant]
  11. VESDIL (RAMIPRIL) [Concomitant]
  12. PRAVASTATIN SODIUM [Concomitant]
  13. ROCALTROL [Concomitant]
  14. CALCIUM ACETATE (CALCIUM ACETATE) [Concomitant]
  15. NEPHOTRANS (SODIUM BICARBONATE) [Concomitant]

REACTIONS (7)
  - DIALYSIS [None]
  - DYSPNOEA [None]
  - ERYSIPELAS [None]
  - GENERALISED OEDEMA [None]
  - NAUSEA [None]
  - RENAL FAILURE CHRONIC [None]
  - TRANSPLANT FAILURE [None]
